FAERS Safety Report 6259815-X (Version None)
Quarter: 2009Q3

REPORT INFORMATION
  Report Type: 
  Country: None (occurrence: None)
  Receive Date: 20090708
  Receipt Date: 20090615
  Transmission Date: 20100115
  Serious: No
  Sender: FDA-Public Use
  Company Number: US-BAYER-200911778BCC

PATIENT
  Age: 66 Year
  Sex: Female
  Weight: 82 kg

DRUGS (8)
  1. ALEVE (CAPLET) [Suspect]
     Indication: ARTHRITIS
     Route: 048
     Dates: start: 20080601
  2. TYLENOL (CAPLET) [Concomitant]
     Dosage: TOTAL DAILY DOSE: 3 DF  UNIT DOSE: 1 DF
     Route: 065
  3. EXTRA STRENGHT TYLENOL [Concomitant]
     Route: 065
  4. DICLOFENAC SODIUM [Concomitant]
     Route: 065
  5. MIDOL [Concomitant]
     Route: 048
  6. EXCEDRIN [Concomitant]
     Route: 065
  7. ARMOUR [Concomitant]
     Route: 065
  8. INDOMETHACIN [Concomitant]
     Route: 065

REACTIONS (2)
  - ARTHRITIS [None]
  - FIBROMYALGIA [None]
